FAERS Safety Report 8094174-1 (Version None)
Quarter: 2012Q1

REPORT INFORMATION
  Report Type: 
  Country: None (occurrence: None)
  Receive Date: 20120130
  Receipt Date: 20120130
  Transmission Date: 20120608
  Serious: No
  Sender: FDA-Public Use
  Company Number: None

PATIENT
  Age: 34 Year
  Sex: Female
  Weight: 81.193 kg

DRUGS (2)
  1. CYMBALTA [Suspect]
     Indication: MYALGIA
     Dosage: 60 MG
     Route: 048
     Dates: start: 20120123, end: 20120125
  2. CYMBALTA [Suspect]
     Indication: ARTHRALGIA
     Dosage: 60 MG
     Route: 048
     Dates: start: 20120123, end: 20120125

REACTIONS (3)
  - BLOOD PRESSURE INCREASED [None]
  - DIZZINESS [None]
  - IMPAIRED DRIVING ABILITY [None]
